FAERS Safety Report 7542981-3 (Version None)
Quarter: 2011Q2

REPORT INFORMATION
  Report Type: 
  Country: None (occurrence: None)
  Receive Date: 20110613
  Receipt Date: 20110601
  Transmission Date: 20111010
  Serious: Yes (Other)
  Sender: FDA-Public Use
  Company Number: PHHY2010IT67678

PATIENT
  Age: 18 Year
  Sex: Male

DRUGS (1)
  1. IMATINIB MESYLATE [Suspect]
     Indication: CHRONIC MYELOID LEUKAEMIA
     Dosage: 400 MG, DAILY

REACTIONS (10)
  - AZOOSPERMIA [None]
  - HORMONE LEVEL ABNORMAL [None]
  - SEMEN VOLUME DECREASED [None]
  - GYNAECOMASTIA [None]
  - BLOOD FOLLICLE STIMULATING HORMONE INCREASED [None]
  - GROWTH RETARDATION [None]
  - SPERM CONCENTRATION DECREASED [None]
  - BONE DENSITY DECREASED [None]
  - SPERMATOGENESIS ABNORMAL [None]
  - BLOOD CALCIUM INCREASED [None]
